FAERS Safety Report 13093550 (Version 2)
Quarter: 2017Q1

REPORT INFORMATION
  Report Type: Report from Study
  Country: US (occurrence: US)
  Receive Date: 20170106
  Receipt Date: 20170118
  Transmission Date: 20170428
  Serious: Yes (Disabling)
  Sender: FDA-Public Use
  Company Number: US-SA-2016SA134226

PATIENT
  Age: 38 Year
  Sex: Male

DRUGS (1)
  1. LEMTRADA [Suspect]
     Active Substance: ALEMTUZUMAB
     Indication: MULTIPLE SCLEROSIS
     Route: 041
     Dates: start: 20160711, end: 20160715

REACTIONS (7)
  - Asthenia [Not Recovered/Not Resolved]
  - Pallor [Recovered/Resolved]
  - Blood pressure decreased [Recovered/Resolved]
  - Rash [Unknown]
  - Depressed mood [Not Recovered/Not Resolved]
  - Dysgeusia [Recovered/Resolved]
  - Musculoskeletal stiffness [Not Recovered/Not Resolved]

NARRATIVE: CASE EVENT DATE: 201607
